FAERS Safety Report 8857577 (Version 2)
Quarter: 2012Q4

REPORT INFORMATION
  Report Type: 
  Country: US (occurrence: US)
  Receive Date: 20121024
  Receipt Date: 20121107
  Transmission Date: 20130627
  Serious: Yes (Other)
  Sender: FDA-Public Use
  Company Number: CHPA2012US021968

PATIENT
  Age: 72 Year
  Sex: Female

DRUGS (3)
  1. MAALOX ANTACID/ANTIGAS MAX QDTABS ASST [Suspect]
     Indication: ABDOMINAL DISCOMFORT
     Dosage: 1 tablet, as needed
     Route: 048
     Dates: start: 2007
  2. DILTIAZEM [Concomitant]
     Indication: HYPERTENSION
     Dosage: UNK
     Dates: start: 2008
  3. PLAVIX [Concomitant]

REACTIONS (2)
  - Transient ischaemic attack [Recovered/Resolved]
  - Blood pressure increased [Recovered/Resolved]
